FAERS Safety Report 5237315-3 (Version None)
Quarter: 2007Q1

REPORT INFORMATION
  Report Type: 
  Country: None (occurrence: None)
  Receive Date: 20070213
  Receipt Date: 20061011
  Transmission Date: 20070707
  Serious: Yes (Death)
  Sender: FDA-Public Use
  Company Number: US-BRISTOL-MYERS SQUIBB COMPANY-13495502

PATIENT
  Age: 59 Year
  Sex: Male

DRUGS (3)
  1. BICNU [Suspect]
     Indication: METASTATIC MALIGNANT MELANOMA
     Route: 042
     Dates: start: 20060525
  2. ZOFRAN [Concomitant]
     Route: 042
     Dates: start: 20060525
  3. DECADRON [Concomitant]
     Route: 042

REACTIONS (1)
  - MALIGNANT NEOPLASM PROGRESSION [None]
